FAERS Safety Report 25398792 (Version 1)
Quarter: 2025Q2

REPORT INFORMATION
  Report Type: Spontaneous
  Country: JP (occurrence: JP)
  Receive Date: 20250604
  Receipt Date: 20250604
  Transmission Date: 20250717
  Serious: Yes (Hospitalization, Other)
  Sender: RECORDATI
  Company Number: JP-ORPHANEU-2025003856

PATIENT
  Age: 82 Year
  Sex: Female

DRUGS (2)
  1. OSILODROSTAT [Suspect]
     Active Substance: OSILODROSTAT
     Indication: Cushing^s syndrome
  2. OSILODROSTAT [Suspect]
     Active Substance: OSILODROSTAT

REACTIONS (8)
  - Pneumonia [Unknown]
  - Cardiac failure [Unknown]
  - Delirium [Unknown]
  - Adrenocortical insufficiency acute [Recovered/Resolved]
  - Herpes zoster [Unknown]
  - Chondrocalcinosis [Unknown]
  - Decreased appetite [Recovered/Resolved]
  - Vomiting [Recovered/Resolved]
